FAERS Safety Report 6725594-2 (Version None)
Quarter: 2010Q2

REPORT INFORMATION
  Report Type: 
  Country: None (occurrence: None)
  Receive Date: 20100514
  Receipt Date: 20100503
  Transmission Date: 20101027
  Serious: Yes (Other)
  Sender: FDA-Public Use
  Company Number: US-ROCHE-694699

PATIENT
  Sex: Male
  Weight: 111 kg

DRUGS (1)
  1. CAPECITABINE [Suspect]
     Dosage: 3 TABLETS IN MORNING AND 2 IN EVENING
     Route: 048
     Dates: start: 20091209, end: 20100322

REACTIONS (4)
  - ABDOMINAL DISTENSION [None]
  - BLOOD BILIRUBIN INCREASED [None]
  - JAUNDICE [None]
  - MALIGNANT NEOPLASM PROGRESSION [None]
